FAERS Safety Report 18573136 (Version 3)
Quarter: 2021Q3

REPORT INFORMATION
  Report Type: Other
  Country: RU (occurrence: RU)
  Receive Date: 20201203
  Receipt Date: 20210817
  Transmission Date: 20211014
  Serious: Yes (Life-Threatening, Other)
  Sender: FDA-Public Use
  Company Number: RU-ROCHE-2630708

PATIENT
  Age: 4 Month
  Sex: Female

DRUGS (3)
  1. PULMICORT TURBUHALER [Concomitant]
     Active Substance: BUDESONIDE
  2. RISDIPLAM. [Suspect]
     Active Substance: RISDIPLAM
     Indication: SPINAL MUSCULAR ATROPHY
     Route: 065
     Dates: start: 20200619
  3. AQUADETRIM [Concomitant]

REACTIONS (7)
  - Apnoea [Unknown]
  - Ear infection [Unknown]
  - Precocious puberty [Unknown]
  - Condition aggravated [Unknown]
  - Renal disorder [Unknown]
  - Aspiration [Unknown]
  - Bradycardia [Unknown]

NARRATIVE: CASE EVENT DATE: 20200621
